FAERS Safety Report 11999613 (Version 1)
Quarter: 2016Q1

REPORT INFORMATION
  Report Type: Other
  Country: CA (occurrence: CA)
  Receive Date: 20160204
  Receipt Date: 20160204
  Transmission Date: 20160526
  Serious: Yes (Hospitalization)
  Sender: FDA-Public Use
  Company Number: CA-JUBILANT GENERICS LIMITED-1047298

PATIENT
  Age: 72 Year
  Sex: Female

DRUGS (3)
  1. RAMIPRIL. [Concomitant]
     Active Substance: RAMIPRIL
  2. DONEPEZIL HYDROCHLORIDE. [Suspect]
     Active Substance: DONEPEZIL HYDROCHLORIDE
  3. DULOXETINE. [Suspect]
     Active Substance: DULOXETINE

REACTIONS (12)
  - Mental disorder [Recovered/Resolved]
  - Hypersexuality [Recovered/Resolved]
  - Delusion of grandeur [Recovered/Resolved]
  - Physical assault [None]
  - Drug level increased [None]
  - Affect lability [None]
  - Judgement impaired [None]
  - Marital problem [None]
  - Delusion [None]
  - Aggression [Recovered/Resolved]
  - Jealous delusion [Recovered/Resolved]
  - Mania [Recovered/Resolved]

NARRATIVE: CASE EVENT DATE: 20160125
